FAERS Safety Report 13498947 (Version 2)
Quarter: 2017Q2

REPORT INFORMATION
  Report Type: Report from Study
  Country: NL (occurrence: NL)
  Receive Date: 20170501
  Receipt Date: 20170516
  Transmission Date: 20170830
  Serious: Yes (Death, Hospitalization)
  Sender: FDA-Public Use
  Company Number: PHHY2017NL063696

PATIENT
  Age: 81 Year
  Sex: Male
  Weight: 76 kg

DRUGS (8)
  1. ZOMETA [Suspect]
     Active Substance: ZOLEDRONIC ACID
     Indication: METASTASES TO BONE
     Dosage: UNK
     Route: 042
     Dates: start: 20100928
  2. ACENOCOUMAROL [Concomitant]
     Active Substance: ACENOCOUMAROL
     Indication: PRODUCT USED FOR UNKNOWN INDICATION
     Dosage: AS SCHEDULED
     Route: 065
  3. OXYNORM [Concomitant]
     Active Substance: OXYCODONE HYDROCHLORIDE
     Indication: PRODUCT USED FOR UNKNOWN INDICATION
     Dosage: 5 MG, PRN (6DD1)
     Route: 065
  4. LUCRIN [Concomitant]
     Active Substance: LEUPROLIDE ACETATE
     Indication: PRODUCT USED FOR UNKNOWN INDICATION
     Dosage: A 6 MONTHS
     Route: 065
  5. PARACETAMOL [Concomitant]
     Active Substance: ACETAMINOPHEN
     Indication: PRODUCT USED FOR UNKNOWN INDICATION
     Dosage: 1000 MG, UNK (1 DF, 2 TO 4 TIMES A DAY)
     Route: 065
  6. MOVICOLON [Concomitant]
     Active Substance: POLYETHYLENE GLYCOL 3350\POTASSIUM CHLORIDE\SODIUM BICARBONATE\SODIUM CHLORIDE
     Dosage: 1 DF, QD
     Route: 065
  7. ZOMETA [Suspect]
     Active Substance: ZOLEDRONIC ACID
     Indication: PROSTATE CANCER METASTATIC
     Dosage: 4 MG/100 ML, PER 12 WEEKS
     Route: 042
  8. FENTANYL. [Concomitant]
     Active Substance: FENTANYL
     Indication: PRODUCT USED FOR UNKNOWN INDICATION
     Dosage: 12 UG, UNK (1 X 3 DAYS)
     Route: 065

REACTIONS (9)
  - Metastases to bone [Fatal]
  - Malignant neoplasm progression [Fatal]
  - Pain [Unknown]
  - Delirium [Fatal]
  - Subarachnoid haemorrhage [Fatal]
  - Pneumonia [Fatal]
  - Inappropriate schedule of drug administration [Unknown]
  - Urinary retention [Fatal]
  - Prostate cancer metastatic [Fatal]

NARRATIVE: CASE EVENT DATE: 20160610
